FAERS Safety Report 24809992 (Version 1)
Quarter: 2025Q1

REPORT INFORMATION
  Report Type: Spontaneous
  Country: US (occurrence: None)
  Receive Date: 20250104
  Receipt Date: 20250104
  Transmission Date: 20250409
  Serious: Yes (Death, Hospitalization)
  Sender: FDA-CTU
  Company Number: None

PATIENT
  Age: 73 Year
  Weight: 74.8 kg

DRUGS (2)
  1. PEMBROLIZUMAB [Suspect]
     Active Substance: PEMBROLIZUMAB
     Dates: end: 20211007
  2. METHOTREXATE [Concomitant]
     Active Substance: METHOTREXATE

REACTIONS (10)
  - Chest pain [None]
  - Abdominal pain [None]
  - Rib fracture [None]
  - Hepatic lesion [None]
  - Acute kidney injury [None]
  - Dialysis [None]
  - Sepsis [None]
  - Cholecystitis acute [None]
  - Lung cancer metastatic [None]
  - Cardiac arrest [None]

NARRATIVE: CASE EVENT DATE: 20211121
